FAERS Safety Report 5277305-8 (Version None)
Quarter: 2007Q1

REPORT INFORMATION
  Report Type: 
  Country: None (occurrence: None)
  Receive Date: 20070327
  Receipt Date: 20070319
  Transmission Date: 20070707
  Serious: Yes (Hospitalization, Other)
  Sender: FDA-Public Use
  Company Number: HQWYE498810NOV05

PATIENT
  Sex: Female
  Weight: 62.8 kg

DRUGS (7)
  1. RAPAMUNE [Suspect]
     Indication: PROPHYLAXIS AGAINST TRANSPLANT REJECTION
     Dosage: UNKNOWN
     Route: 048
     Dates: start: 20050111, end: 20050111
  2. RAPAMUNE [Suspect]
     Route: 048
     Dates: start: 20050112, end: 20050124
  3. RAPAMUNE [Suspect]
     Route: 048
     Dates: start: 20050125
  4. PREDNISONE [Concomitant]
     Route: 048
     Dates: start: 20050121
  5. SULFAMETHOXAZOLE + TRIMETHOPRIM [Concomitant]
     Route: 048
     Dates: start: 20050114
  6. CYCLOSPORINE [Concomitant]
     Route: 048
     Dates: start: 20050121, end: 20050125
  7. CYCLOSPORINE [Concomitant]
     Route: 048
     Dates: start: 20050126

REACTIONS (1)
  - NEPHROPATHY TOXIC [None]
